FAERS Safety Report 9678710 (Version 2)
Quarter: 2013Q4

REPORT INFORMATION
  Report Type: Spontaneous
  Country: ES (occurrence: ES)
  Receive Date: 20131108
  Receipt Date: 20131115
  Transmission Date: 20140711
  Serious: Yes (Other)
  Sender: FDA-Public Use
  Company Number: ES-PFIZER INC-2013318290

PATIENT
  Age: 9 Year
  Sex: Male
  Weight: 23 kg

DRUGS (2)
  1. IBUPROFEN [Suspect]
     Indication: PERICARDITIS
     Dosage: 1800 MG, DAILY
  2. PREDNISONE [Suspect]
     Indication: PERICARDITIS
     Dosage: 0.5-1 MG/KG/DAY

REACTIONS (3)
  - Overdose [Unknown]
  - Cushing^s syndrome [Unknown]
  - Growth retardation [Unknown]
